FAERS Safety Report 7370386-7 (Version None)
Quarter: 2011Q1

REPORT INFORMATION
  Report Type: 
  Country: None (occurrence: None)
  Receive Date: 20110323
  Receipt Date: 20110315
  Transmission Date: 20110831
  Serious: Yes (Life-Threatening, Hospitalization)
  Sender: FDA-Public Use
  Company Number: NL-B.I. PHARMACEUTICALS,INC./RIDGEFIELD-2011-NL-00113NL

PATIENT
  Sex: Male

DRUGS (17)
  1. SIFROL 0.088MG [Suspect]
     Indication: MUSCLE CONTRACTIONS INVOLUNTARY
     Dosage: 3DD1 0.125MG (0.088MG BASE) AS REQUIRED
     Dates: start: 20110110, end: 20110201
  2. FUROSEMIDE [Concomitant]
     Dosage: 40 MG
  3. ATROVENT [Suspect]
     Dosage: 160 MCG
     Route: 055
  4. ACENOCOUMAROL [Concomitant]
     Dosage: ACCORDING TO INSTRUCTIONS OF ANTI-THROMBOTIC SERVICE
  5. PREDNISOLONE [Concomitant]
     Dosage: 30 MG
     Dates: start: 20100601
  6. ALVESCO [Concomitant]
     Dosage: 160 MCG
  7. ALLOPURINOL [Concomitant]
     Dosage: 300 MG
  8. FRAXIPARIN [Concomitant]
     Dosage: INFUSION FOR INJECTION 9500IU/ML; 0.8 ML; 31INJ
     Dates: start: 20110101
  9. SEREVENT [Concomitant]
     Dosage: 100 MCG
     Route: 055
  10. THYRAX DUOTAB [Concomitant]
     Dosage: 25 MCG
     Dates: start: 20100901
  11. OXYGEN THERAPY [Concomitant]
     Dates: start: 20100101
  12. THYRAX DUOTAB [Concomitant]
     Dosage: 100 MCG
     Dates: start: 20101101
  13. MOVICOLON CHOCOLATE [Concomitant]
     Dosage: 1 ANZ
     Dates: start: 20101101
  14. EZETROL [Concomitant]
     Dosage: 10 MG
  15. HYDROCHLOROTHIAZIDE [Concomitant]
     Dosage: 12.5 MG
  16. FOSINOPRIL SODIUM [Concomitant]
     Dosage: 20 MG
  17. OMEPRAZOLE [Concomitant]
     Dosage: 40 MG
     Dates: start: 20110101

REACTIONS (1)
  - RESPIRATORY FAILURE [None]
